FAERS Safety Report 16463821 (Version 1)
Quarter: 2019Q2

REPORT INFORMATION
  Report Type: Report from Study
  Country: US (occurrence: US)
  Receive Date: 20190621
  Receipt Date: 20190621
  Transmission Date: 20190711
  Serious: Yes (Death)
  Sender: FDA-Public Use
  Company Number: US-BAYER-2019-074444

PATIENT
  Age: 40 Year
  Sex: Female

DRUGS (4)
  1. SINUS [AMOXICILLIN TRIHYDRATE;BENZYDAMINE HYDROCHLORIDE;BROMHEXINE [Concomitant]
     Dosage: UNK
  2. BETASERON [Suspect]
     Active Substance: INTERFERON BETA-1B
     Indication: MULTIPLE SCLEROSIS
     Dosage: 0.25 MG, QOD
     Route: 058
     Dates: start: 20130924
  3. BETASERON [Suspect]
     Active Substance: INTERFERON BETA-1B
     Indication: RELAPSING-REMITTING MULTIPLE SCLEROSIS
     Dosage: 8 MIU, QOD
     Route: 058
     Dates: start: 20120301
  4. TIZANIDINE. [Concomitant]
     Active Substance: TIZANIDINE
     Dosage: UNK

REACTIONS (4)
  - Product dose omission [Not Recovered/Not Resolved]
  - Product dose omission [None]
  - Death [Fatal]
  - Product dose omission [Recovered/Resolved]

NARRATIVE: CASE EVENT DATE: 20190617
